FAERS Safety Report 17568941 (Version 1)
Quarter: 2020Q1

REPORT INFORMATION
  Report Type: Report from Study
  Country: BR (occurrence: BR)
  Receive Date: 20200321
  Receipt Date: 20200321
  Transmission Date: 20200409
  Serious: Yes (Other)
  Sender: FDA-Public Use
  Company Number: BR-UCBSA-2020010970

PATIENT
  Age: 38 Year
  Sex: Female
  Weight: 52 kg

DRUGS (10)
  1. DIPYRONE [Concomitant]
     Active Substance: DIPYRONE
     Indication: MIGRAINE
     Dosage: UNK
     Route: 048
  2. FRISIUM [Concomitant]
     Active Substance: CLOBAZAM
     Indication: PRODUCT USED FOR UNKNOWN INDICATION
     Dosage: 10 MILLIGRAM, UNK
  3. IMECAP HAIR [Concomitant]
     Indication: ALOPECIA
  4. DIPYRONE [Concomitant]
     Active Substance: DIPYRONE
     Indication: PYREXIA
  5. LEVETIRACETAM. [Suspect]
     Active Substance: LEVETIRACETAM
     Indication: JUVENILE MYOCLONIC EPILEPSY
     Dosage: 500 MILLIGRAM, 2X/DAY (BID)
     Route: 048
     Dates: start: 2016
  6. IMECAP HAIR [Concomitant]
     Indication: ONYCHOCLASIS
  7. DIPYRONE [Concomitant]
     Active Substance: DIPYRONE
     Indication: NASOPHARYNGITIS
  8. SINVASTATINA [Concomitant]
     Active Substance: SIMVASTATIN
     Indication: BLOOD CHOLESTEROL INCREASED
  9. SELOZOK [Concomitant]
     Active Substance: METOPROLOL SUCCINATE
     Indication: ARRHYTHMIA
     Dosage: 25 MILLIGRAM, UNK
  10. CARBAMAZEPINA [Concomitant]
     Active Substance: CARBAMAZEPINE
     Indication: PRODUCT USED FOR UNKNOWN INDICATION
     Dosage: 200 MILLIGRAM, UNK

REACTIONS (13)
  - Decreased appetite [Not Recovered/Not Resolved]
  - Fall [Not Recovered/Not Resolved]
  - Weight decreased [Not Recovered/Not Resolved]
  - Onychoclasis [Not Recovered/Not Resolved]
  - Nasopharyngitis [Recovering/Resolving]
  - Memory impairment [Not Recovered/Not Resolved]
  - Dysarthria [Not Recovered/Not Resolved]
  - Seizure [Unknown]
  - Asthenia [Not Recovered/Not Resolved]
  - Blood cholesterol increased [Unknown]
  - Migraine [Not Recovered/Not Resolved]
  - Arrhythmia [Unknown]
  - Alopecia [Not Recovered/Not Resolved]

NARRATIVE: CASE EVENT DATE: 2020
